FAERS Safety Report 6470533-5 (Version None)
Quarter: 2009Q4

REPORT INFORMATION
  Report Type: 
  Country: None (occurrence: None)
  Receive Date: 20091119
  Receipt Date: 20090918
  Transmission Date: 20100525
  Serious: No
  Sender: FDA-Public Use
  Company Number: WAES 0906USA01403

PATIENT
  Age: 48 Year
  Sex: Female
  Weight: 133.3575 kg

DRUGS (1)
  1. JANUVIA [Suspect]
     Indication: BLOOD GLUCOSE
     Dosage: 50 MG/DAILY/PO
     Route: 048
     Dates: start: 20090510, end: 20090520

REACTIONS (1)
  - VISION BLURRED [None]
